FAERS Safety Report 6183845-X (Version None)
Quarter: 2009Q2

REPORT INFORMATION
  Report Type: 
  Country: None (occurrence: None)
  Receive Date: 20090508
  Receipt Date: 20090506
  Transmission Date: 20091009
  Serious: Yes (Hospitalization)
  Sender: FDA-Public Use
  Company Number: FR-WYE-G02575008

PATIENT
  Sex: Male
  Weight: 73 kg

DRUGS (2)
  1. TORISEL [Suspect]
     Indication: METASTATIC RENAL CELL CARCINOMA
     Dosage: 25 MG
     Route: 042
     Dates: start: 20080807, end: 20080807
  2. AVASTIN [Suspect]
     Indication: METASTATIC RENAL CELL CARCINOMA
     Dosage: 740 MG
     Route: 042
     Dates: start: 20080807, end: 20080807

REACTIONS (1)
  - ESCHERICHIA SEPSIS [None]
